FAERS Safety Report 9072434 (Version 4)
Quarter: 2013Q1

REPORT INFORMATION
  Report Type: Spontaneous
  Country: JP (occurrence: JP)
  Receive Date: 20130207
  Receipt Date: 20130304
  Transmission Date: 20140127
  Serious: Yes (Other)
  Sender: FDA-Public Use
  Company Number: JP-PFIZER INC-2013051018

PATIENT
  Age: 67 Year
  Sex: Female
  Weight: 54 kg

DRUGS (5)
  1. LIPITOR [Suspect]
     Indication: HYPERLIPIDAEMIA
     Dosage: 5 MG, 1X/DAY
     Route: 048
     Dates: start: 20111212, end: 20130201
  2. MICAMLO [Suspect]
     Indication: HYPERTENSION
     Dosage: 1 DF, 1X/DAY
     Route: 048
     Dates: start: 20121019, end: 20130201
  3. ARTIST [Suspect]
     Indication: HYPERTENSION
     Dosage: 5 MG, 1X/DAY
     Route: 048
     Dates: start: 20111212, end: 20130201
  4. HIRUDOID [Concomitant]
     Dosage: UNK
     Dates: start: 20121120
  5. DERMOVATE [Concomitant]
     Dosage: UNK
     Dates: start: 20121120

REACTIONS (1)
  - Pustular psoriasis [Recovering/Resolving]
